FAERS Safety Report 24528206 (Version 1)
Quarter: 2024Q4

REPORT INFORMATION
  Report Type: Spontaneous
  Country: US (occurrence: US)
  Receive Date: 20241021
  Receipt Date: 20241021
  Transmission Date: 20250114
  Serious: Yes (Hospitalization)
  Sender: AUROBINDO
  Company Number: US-AUROBINDO-AUR-APL-2024-050331

PATIENT
  Age: 50 Year
  Sex: Male

DRUGS (2)
  1. ADENOSINE [Suspect]
     Active Substance: ADENOSINE
     Indication: Supraventricular tachycardia
     Dosage: 6 MILLIGRAM
     Route: 042
  2. METOPROLOL [Suspect]
     Active Substance: METOPROLOL
     Indication: Supraventricular tachycardia
     Dosage: 5 MILLIGRAM
     Route: 042

REACTIONS (1)
  - Drug ineffective [Unknown]
